FAERS Safety Report 20061365 (Version 5)
Quarter: 2023Q1

REPORT INFORMATION
  Report Type: Spontaneous
  Country: US (occurrence: US)
  Receive Date: 20211112
  Receipt Date: 20230217
  Transmission Date: 20230418
  Serious: No
  Sender: FDA-Public Use
  Company Number: US-BRISTOL-MYERS SQUIBB COMPANY-BMS-2021-120645

PATIENT
  Age: 23 Year
  Sex: Female

DRUGS (2)
  1. ORENCIA [Suspect]
     Active Substance: ABATACEPT
     Indication: Rheumatoid arthritis
     Dosage: 125 MILLIGRAM, QWK?STRENGTH:125MG/ML?ORENCIA CLICKJET/AUTOINJECTOR
     Route: 058
     Dates: start: 20200911
  2. ORENCIA [Suspect]
     Active Substance: ABATACEPT
     Dosage: STRENGTH:125MG/ML?ORENCIA CLICKJET/AUTOINJECTOR
     Route: 058
     Dates: start: 202103

REACTIONS (3)
  - Joint swelling [Not Recovered/Not Resolved]
  - Arthralgia [Not Recovered/Not Resolved]
  - Rheumatoid arthritis [Recovering/Resolving]
